FAERS Safety Report 10927604 (Version 1)
Quarter: 2015Q1

REPORT INFORMATION
  Report Type: Spontaneous
  Country: CN (occurrence: CN)
  Receive Date: 20150318
  Receipt Date: 20150318
  Transmission Date: 20150721
  Serious: Yes (Other)
  Sender: FDA-Public Use
  Company Number: CN-BAXTER-2015BAX013897

PATIENT
  Age: 65 Year
  Sex: Male
  Weight: 75 kg

DRUGS (20)
  1. LANSOPRAZOLE. [Concomitant]
     Active Substance: LANSOPRAZOLE
     Indication: POSTOPERATIVE CARE
     Route: 065
     Dates: end: 20140530
  2. ACETYLCYSTEINE. [Concomitant]
     Active Substance: ACETYLCYSTEINE
     Indication: POSTOPERATIVE CARE
     Route: 065
     Dates: end: 20140530
  3. MAGNESIUM ISOGLYCYRRHIZINATE [Concomitant]
     Indication: POSTOPERATIVE CARE
     Route: 065
     Dates: end: 20140603
  4. CREATINE PHOSPHATE SODIUM [Concomitant]
     Active Substance: CREATINE
     Indication: POSTOPERATIVE CARE
     Route: 065
     Dates: end: 20140531
  5. COMPOUND DIISOPROPYLAMINE DICHLOROACETATE [Concomitant]
     Indication: POSTOPERATIVE CARE
     Route: 065
     Dates: end: 20140603
  6. DEXAMETHASONE SODIUM PHOSPHATE. [Suspect]
     Active Substance: DEXAMETHASONE SODIUM PHOSPHATE
     Indication: CHEST DISCOMFORT
     Route: 040
     Dates: start: 20140529
  7. AMBROXOL HYDROCHLORIDE [Concomitant]
     Active Substance: AMBROXOL HYDROCHLORIDE
     Indication: POSTOPERATIVE CARE
     Route: 065
     Dates: end: 20140530
  8. ADENOSINE DISODIUM TRIPHOSPHATE AND MAGNESIUM CHLORIDE [Concomitant]
     Indication: POSTOPERATIVE CARE
     Route: 065
     Dates: end: 20140530
  9. REDUCED GLUTATHIONE [Concomitant]
     Indication: POSTOPERATIVE CARE
     Route: 065
     Dates: end: 20140603
  10. RECOMBINANT HUMAN INSULIN [Concomitant]
     Indication: POSTOPERATIVE CARE
     Route: 065
     Dates: end: 20140603
  11. GIK [Concomitant]
     Indication: POSTOPERATIVE CARE
     Route: 065
     Dates: end: 20140530
  12. ALPROSTADIL. [Concomitant]
     Active Substance: ALPROSTADIL
     Indication: POSTOPERATIVE CARE
     Route: 065
     Dates: end: 20140602
  13. BUMINATE 5% [Suspect]
     Active Substance: ALBUMIN (HUMAN)
     Route: 041
     Dates: start: 20140529, end: 20140529
  14. DEXAMETHASONE SODIUM PHOSPHATE. [Suspect]
     Active Substance: DEXAMETHASONE SODIUM PHOSPHATE
     Indication: WHEEZING
  15. CEFOTIAM HYDROCHLORIDE [Concomitant]
     Active Substance: CEFOTIAM HYDROCHLORIDE
     Indication: POSTOPERATIVE CARE
     Route: 065
     Dates: end: 20140529
  16. CYCLIC ADENOSINE MONOPHOSPHATE MEGLUMINE [Concomitant]
     Indication: POSTOPERATIVE CARE
     Route: 065
     Dates: end: 20140531
  17. DEXAMETHASONE SODIUM PHOSPHATE. [Suspect]
     Active Substance: DEXAMETHASONE SODIUM PHOSPHATE
     Indication: HYPERHIDROSIS
  18. ALANYL GLUTAMINE [Concomitant]
     Active Substance: ALANYL GLUTAMINE
     Indication: POSTOPERATIVE CARE
     Route: 065
     Dates: end: 20140530
  19. 20 AMINO ACIDS [Concomitant]
     Indication: POSTOPERATIVE CARE
     Route: 065
     Dates: end: 20140530
  20. BUMINATE 5% [Suspect]
     Active Substance: ALBUMIN (HUMAN)
     Indication: SUPPORTIVE CARE
     Route: 041
     Dates: start: 20140527, end: 20140527

REACTIONS (5)
  - Rash erythematous [Recovering/Resolving]
  - Wheezing [Recovering/Resolving]
  - Hyperhidrosis [Recovering/Resolving]
  - Pruritus [Recovered/Resolved]
  - Chest discomfort [Recovering/Resolving]

NARRATIVE: CASE EVENT DATE: 20140527
